FAERS Safety Report 8541618-4 (Version None)
Quarter: 2012Q3

REPORT INFORMATION
  Report Type: 
  Country: None (occurrence: None)
  Receive Date: 20120726
  Receipt Date: 20110920
  Transmission Date: 20120928
  Serious: No
  Sender: FDA-Public Use
  Company Number: US-ASTRAZENECA-2011SE56373

PATIENT
  Age: 58 Year
  Sex: Female
  Weight: 59.4 kg

DRUGS (9)
  1. SEROQUEL [Suspect]
     Indication: SCHIZOAFFECTIVE DISORDER
     Route: 048
     Dates: start: 20080101, end: 20090101
  2. SYNTHROID [Concomitant]
     Indication: THYROID DISORDER
  3. SEROQUEL [Suspect]
     Route: 048
  4. VALIUM [Concomitant]
  5. SYMBICORT [Concomitant]
  6. LISINOPRIL [Concomitant]
     Indication: HYPERTENSION
  7. PROZAC [Concomitant]
     Indication: INSOMNIA
  8. GUAIFENESIN [Concomitant]
  9. SPIRIVA [Concomitant]

REACTIONS (5)
  - MIDDLE INSOMNIA [None]
  - SLEEP-RELATED EATING DISORDER [None]
  - AMNESIA [None]
  - THIRST [None]
  - WEIGHT INCREASED [None]
